FAERS Safety Report 5778567-0 (Version None)
Quarter: 2008Q2

REPORT INFORMATION
  Report Type: 
  Country: None (occurrence: None)
  Receive Date: 20080618
  Receipt Date: 20080618
  Transmission Date: 20081010
  Serious: Yes (Hospitalization)
  Sender: FDA-Public Use
  Company Number: None

PATIENT
  Age: 59 Year
  Sex: Female
  Weight: 74.8435 kg

DRUGS (1)
  1. SIMVASTATIN [Suspect]
     Dosage: 40MG TWICE A DAY PO
     Route: 048
     Dates: start: 20060706, end: 20070214

REACTIONS (11)
  - DIVERTICULUM [None]
  - DIZZINESS [None]
  - DYSURIA [None]
  - FATIGUE [None]
  - HEPATIC STEATOSIS [None]
  - HIATUS HERNIA [None]
  - LABORATORY TEST ABNORMAL [None]
  - MUSCLE SPASMS [None]
  - MYALGIA [None]
  - RHABDOMYOLYSIS [None]
  - URINARY TRACT INFECTION [None]
